FAERS Safety Report 24363007 (Version 1)
Quarter: 2024Q3

REPORT INFORMATION
  Report Type: Spontaneous
  Country: AU (occurrence: AU)
  Receive Date: 20240925
  Receipt Date: 20240925
  Transmission Date: 20241017
  Serious: Yes (Other)
  Sender: LUNDBECK
  Company Number: AU-LUNDBECK-DKLU4004545

PATIENT

DRUGS (1)
  1. VYEPTI [Suspect]
     Active Substance: EPTINEZUMAB-JJMR
     Indication: Product used for unknown indication
     Route: 041

REACTIONS (7)
  - Impaired gastric emptying [Unknown]
  - Vomiting [Unknown]
  - Abdominal distension [Unknown]
  - Insomnia [Unknown]
  - Pain [Unknown]
  - Migraine [Unknown]
  - Abdominal discomfort [Unknown]
